FAERS Safety Report 16193096 (Version 1)
Quarter: 2019Q2

REPORT INFORMATION
  Report Type: Spontaneous
  Country: US (occurrence: US)
  Receive Date: 20190413
  Receipt Date: 20190413
  Transmission Date: 20190711
  Serious: No
  Sender: FDA-Public Use
  Company Number: US-009507513-1903USA010589

PATIENT
  Sex: Female

DRUGS (1)
  1. KEYTRUDA [Suspect]
     Active Substance: PEMBROLIZUMAB
     Indication: GENITAL NEOPLASM MALIGNANT FEMALE
     Dosage: UNK UNK, UNKNOWN
     Route: 042

REACTIONS (2)
  - Hypoaesthesia [Unknown]
  - Product use in unapproved indication [Unknown]
